FAERS Safety Report 4512915-4 (Version None)
Quarter: 2004Q4

REPORT INFORMATION
  Report Type: 
  Country: None (occurrence: None)
  Receive Date: 20041123
  Receipt Date: 20041123
  Transmission Date: 20050328
  Serious: Yes (Other)
  Sender: FDA-Public Use
  Company Number: None

PATIENT
  Sex: Female
  Weight: 117.9352 kg

DRUGS (2)
  1. DITROPAN XL [Suspect]
     Indication: BLADDER DISORDER
     Dosage: ONE TABLET ONE PER DAY ORAL
     Route: 048
     Dates: start: 20040427, end: 20040623
  2. GLUCOTROL XL [Suspect]
     Dosage: ONE TABLET ONE PER DAY ORAL
     Route: 048

REACTIONS (1)
  - MEDICATION ERROR [None]
